FAERS Safety Report 10053373 (Version 6)
Quarter: 2014Q2

REPORT INFORMATION
  Report Type: Spontaneous
  Country: US (occurrence: US)
  Receive Date: 20140402
  Receipt Date: 20140604
  Transmission Date: 20141212
  Serious: Yes (Other)
  Sender: FDA-Public Use
  Company Number: US-PFIZER INC-2014088646

PATIENT
  Age: 34 Year
  Sex: Female
  Weight: 52.2 kg

DRUGS (7)
  1. VENLAFAXINE HCL [Suspect]
     Indication: DEPRESSION
     Dosage: 150 MG, 1X/DAY
     Route: 048
  2. VENLAFAXINE HCL [Interacting]
     Indication: ANXIETY
     Dosage: 150 MG, TWO TIMES A DAY
     Route: 048
  3. VENLAFAXINE HCL [Interacting]
     Dosage: 150 MG, UNK
     Route: 048
  4. TIKOSYN [Suspect]
     Dosage: UNK
     Dates: start: 201402
  5. BACTRIM [Interacting]
     Indication: SKIN INFECTION
     Dosage: UNK
     Dates: start: 201402
  6. BACTRIM [Interacting]
     Indication: CELLULITIS
  7. BACTRIM [Interacting]
     Indication: BACTERIAL INFECTION

REACTIONS (21)
  - Convulsion [Unknown]
  - Cellulitis [Unknown]
  - Drug interaction [Unknown]
  - Malaise [Recovered/Resolved]
  - Anxiety [Unknown]
  - Urinary incontinence [Unknown]
  - Anger [Unknown]
  - Fatigue [Unknown]
  - Migraine [Unknown]
  - Movement disorder [Unknown]
  - Dehydration [Unknown]
  - Palpitations [Unknown]
  - Influenza [Unknown]
  - Hyperhidrosis [Unknown]
  - Oral discomfort [Unknown]
  - Pain in extremity [Unknown]
  - Product quality issue [Unknown]
  - Heart rate increased [Unknown]
  - Panic attack [Unknown]
  - Skin disorder [Unknown]
  - Feeling abnormal [Unknown]
